FAERS Safety Report 7370078-4 (Version None)
Quarter: 2011Q1

REPORT INFORMATION
  Report Type: 
  Country: None (occurrence: None)
  Receive Date: 20110323
  Receipt Date: 20110303
  Transmission Date: 20110831
  Serious: No
  Sender: FDA-Public Use
  Company Number: US-B.I. PHARMACEUTICALS,INC./RIDGEFIELD-2011-BP-07306BP

PATIENT
  Age: 87 Year
  Sex: Male

DRUGS (6)
  1. SOTALOL HCL [Concomitant]
     Indication: HYPERTENSION
  2. SOTALOL HCL [Concomitant]
     Indication: ATRIAL FIBRILLATION
  3. LASIX [Concomitant]
     Indication: HYPERTENSION
  4. PRADAXA [Suspect]
     Indication: ATRIAL FIBRILLATION
     Dosage: 300 MG
     Route: 048
     Dates: start: 20110101
  5. DEXILANT [Concomitant]
     Indication: REFLUX GASTRITIS
  6. DEXILANT [Concomitant]
     Indication: HERNIA

REACTIONS (1)
  - HEADACHE [None]
